FAERS Safety Report 4679481-4 (Version None)
Quarter: 2005Q2

REPORT INFORMATION
  Report Type: 
  Country: None (occurrence: None)
  Receive Date: 20050602
  Receipt Date: 20040429
  Transmission Date: 20051028
  Serious: Yes (Death, Hospitalization)
  Sender: FDA-Public Use
  Company Number: US-SANOFI-SYNTHELABO-A03200401344

PATIENT
  Sex: Male
  Weight: 92.5 kg

DRUGS (8)
  1. ELOXATIN [Suspect]
     Indication: COLORECTAL CANCER METASTATIC
     Route: 042
     Dates: start: 20040420, end: 20040420
  2. AVASTIN [Suspect]
     Route: 042
     Dates: start: 20040420, end: 20040420
  3. FLUOROURACIL [Concomitant]
     Dosage: UNK
     Route: 042
     Dates: start: 20040420
  4. LEUCOVORIN [Concomitant]
     Dosage: UNK
     Route: 042
     Dates: start: 20040420
  5. ANZEMET [Concomitant]
     Dosage: UNK
     Route: 065
     Dates: start: 20040420
  6. DECADRON [Concomitant]
     Dosage: UNK
     Route: 042
     Dates: start: 20040420
  7. COUMADIN [Concomitant]
     Dosage: UNK
     Route: 048
  8. COMPAZINE [Concomitant]
     Dosage: UNK
     Route: 048

REACTIONS (2)
  - BLOOD CREATININE INCREASED [None]
  - RENAL FAILURE ACUTE [None]
